FAERS Safety Report 9708756 (Version 2)
Quarter: 2013Q4

REPORT INFORMATION
  Report Type: Spontaneous
  Country: JP (occurrence: JP)
  Receive Date: 20131125
  Receipt Date: 20131203
  Transmission Date: 20140711
  Serious: Yes (Other)
  Sender: FDA-Public Use
  Company Number: JP-VIIV HEALTHCARE LIMITED-B0947251A

PATIENT
  Age: 5 Decade
  Sex: Male

DRUGS (2)
  1. EPZICOM [Suspect]
     Route: 048
  2. ISENTRESS [Concomitant]
     Route: 048

REACTIONS (4)
  - Pancytopenia [Unknown]
  - Blood erythropoietin decreased [Unknown]
  - Carnitine decreased [Unknown]
  - Anaemia [Unknown]
